FAERS Safety Report 10063399 (Version 1)
Quarter: 2014Q2

REPORT INFORMATION
  Report Type: Spontaneous
  Country: NL (occurrence: NL)
  Receive Date: 20140407
  Receipt Date: 20140407
  Transmission Date: 20141212
  Serious: Yes (Other)
  Sender: FDA-Public Use
  Company Number: NL-ACTAVIS-2014-06418

PATIENT
  Sex: Female

DRUGS (1)
  1. OXAZEPAM ACTAVIS [Suspect]
     Indication: SLEEP DISORDER
     Dosage: 10 MG, UNK
     Route: 065

REACTIONS (11)
  - Heart rate increased [Recovering/Resolving]
  - Dyspnoea [Recovering/Resolving]
  - Confusional state [Recovering/Resolving]
  - Slow speech [Recovering/Resolving]
  - Gait disturbance [Recovering/Resolving]
  - Sudden onset of sleep [Recovering/Resolving]
  - Feeling drunk [Recovering/Resolving]
  - Somnolence [Recovering/Resolving]
  - Malaise [Recovering/Resolving]
  - Restlessness [Recovering/Resolving]
  - Dizziness [Recovering/Resolving]
